FAERS Safety Report 8610917-X (Version None)
Quarter: 2012Q3

REPORT INFORMATION
  Report Type: 
  Country: None (occurrence: None)
  Receive Date: 20120809
  Receipt Date: 20120725
  Transmission Date: 20120928
  Serious: Yes (Other)
  Sender: FDA-Public Use
  Company Number: 2011MA001879

PATIENT
  Sex: Male
  Weight: 83.9154 kg

DRUGS (30)
  1. BETAMETHASONE [Concomitant]
  2. EFFEXOR [Concomitant]
  3. LISINOPRIL [Concomitant]
  4. NEURONTIN [Concomitant]
  5. NEXIUM [Concomitant]
  6. METOCLOPRAMIDE [Suspect]
     Indication: GASTROOESOPHAGEAL REFLUX DISEASE
     Dosage: 10 MG; PO
     Route: 048
     Dates: start: 20090630, end: 20090808
  7. FLUTICASONE PROPIONATE [Concomitant]
  8. AZITHROMYCIN [Concomitant]
  9. CEPHALEXIN [Concomitant]
  10. HISTINEX HC [Concomitant]
  11. LIPITOR [Concomitant]
  12. PRILOSEC [Concomitant]
  13. ALPRAZOLAM [Concomitant]
  14. FLUTICASONE PROPIONATE [Concomitant]
  15. DICLOFENAC SODIUM [Concomitant]
  16. FLOMAX [Concomitant]
  17. FUROSEMIDE [Concomitant]
  18. TORSEMIDE [Concomitant]
  19. WELLBUTRIN [Concomitant]
  20. AZMACORT [Concomitant]
  21. EPIDURAL INJECTIONS [Concomitant]
  22. CITALOPRAM HYDROBROMIDE [Concomitant]
  23. CYMBALTA [Concomitant]
  24. FLEXERIL [Concomitant]
  25. POTASSIUM [Concomitant]
  26. PREDNISONE TAB [Concomitant]
  27. AMLODIPINE [Concomitant]
  28. CYCLOBENZAPRINE [Concomitant]
  29. HYOSCYAMINE [Concomitant]
  30. XYZAL [Concomitant]

REACTIONS (5)
  - BACK PAIN [None]
  - BRONCHITIS [None]
  - TARDIVE DYSKINESIA [None]
  - ECONOMIC PROBLEM [None]
  - EMOTIONAL DISORDER [None]
